FAERS Safety Report 8639033 (Version 2)
Quarter: 2014Q1

REPORT INFORMATION
  Report Type: Spontaneous
  Country: US (occurrence: None)
  Receive Date: 20120323
  Receipt Date: 20130305
  Transmission Date: 20141002
  Serious: Yes (Hospitalization)
  Sender: FDA-Public Use
  Company Number: 163-21880-11102621

PATIENT
  Age: 66 Year
  Sex: Male

DRUGS (7)
  1. REVLIMID (LENALIDOMIDE) (25 MILLIGRAM, CAPSULES) [Suspect]
     Indication: PLASMA CELL MYELOMA
     Dosage: 25 MG, DAILY 21 DAYS ON 7 OFF,  PO
     Route: 048
     Dates: start: 20110627, end: 20111011
  2. ASPIRIN [Concomitant]
  3. DECADRON [Concomitant]
  4. MULTI-VITAMIN [Concomitant]
  5. NEURONTIN [Concomitant]
  6. PERCOCET [Concomitant]
  7. ZOMETA (ZOLEDRONIC ACID) (UNKNOWN) [Concomitant]

REACTIONS (2)
  - Blood creatinine increased [None]
  - Dehydration [None]
